FAERS Safety Report 5257644-7 (Version None)
Quarter: 2007Q1

REPORT INFORMATION
  Report Type: 
  Country: None (occurrence: None)
  Receive Date: 20070302
  Receipt Date: 20070222
  Transmission Date: 20070707
  Serious: Yes (Hospitalization)
  Sender: FDA-Public Use
  Company Number: 153234ISR

PATIENT
  Age: 55 Year
  Sex: Male

DRUGS (5)
  1. CARBOPLATIN [Suspect]
     Indication: LYMPHOMA
     Dosage: 680 MG INTRAVENOUS
     Route: 042
     Dates: start: 20060819, end: 20060819
  2. IFOSFAMIDE [Suspect]
     Indication: LYMPHOMA
     Dosage: ?? INTRAVENOUS (NOT OTHERWISE SPECIFIED)
     Route: 042
     Dates: start: 20060819, end: 20060819
  3. MESNA [Suspect]
     Indication: LYMPHOMA
     Dosage: INTRAVENOUS
     Route: 042
     Dates: start: 20060819, end: 20060819
  4. ETOPOSIDE [Suspect]
     Indication: LYMPHOMA
     Dosage: INTRAVENOUS
     Route: 042
     Dates: start: 20060818, end: 20060820
  5. RITUXIMAB [Suspect]
     Indication: LYMPHOMA
     Dosage: INTRAVENOUS (NOT OTHERWISE SPECIFIED)
     Route: 042
     Dates: start: 20060819, end: 20060819

REACTIONS (3)
  - CONFUSIONAL STATE [None]
  - DISORIENTATION [None]
  - PARANOIA [None]
